FAERS Safety Report 25393915 (Version 1)
Quarter: 2025Q2

REPORT INFORMATION
  Report Type: Spontaneous
  Country: US (occurrence: None)
  Receive Date: 20250604
  Receipt Date: 20250604
  Transmission Date: 20250717
  Serious: No
  Sender: Valinor Pharma
  Company Number: US-Valinor Pharma, LLC-VLR202504-000078

PATIENT
  Age: 74 Year
  Sex: Female
  Weight: 53.97 kg

DRUGS (6)
  1. MOVANTIK [Suspect]
     Active Substance: NALOXEGOL OXALATE
     Indication: Constipation
     Route: 065
     Dates: start: 20250224
  2. TRAMADOL [Concomitant]
     Active Substance: TRAMADOL
     Indication: Fibromyalgia
     Route: 065
  3. TRAMADOL [Concomitant]
     Active Substance: TRAMADOL
     Indication: Back pain
  4. MELOXICAM [Concomitant]
     Active Substance: MELOXICAM
     Indication: Pain
     Route: 065
  5. CYMBALTA [Concomitant]
     Active Substance: DULOXETINE HYDROCHLORIDE
     Indication: Anxiety
     Route: 065
  6. CYMBALTA [Concomitant]
     Active Substance: DULOXETINE HYDROCHLORIDE
     Indication: Depression

REACTIONS (6)
  - Frequent bowel movements [Not Recovered/Not Resolved]
  - Sleep disorder [Not Recovered/Not Resolved]
  - Illness [Unknown]
  - Muscle spasms [Unknown]
  - Flatulence [Not Recovered/Not Resolved]
  - Vomiting [Unknown]

NARRATIVE: CASE EVENT DATE: 20250224
